FAERS Safety Report 10149268 (Version 1)
Quarter: 2014Q2

REPORT INFORMATION
  Report Type: Spontaneous
  Country: US (occurrence: US)
  Receive Date: 20140502
  Receipt Date: 20140502
  Transmission Date: 20141212
  Serious: Yes (Other)
  Sender: FDA-Public Use
  Company Number: US-SA-2014SA055599

PATIENT
  Age: 56 Year
  Sex: Male

DRUGS (3)
  1. FABRAZYME [Suspect]
     Indication: FABRY^S DISEASE
     Route: 042
     Dates: start: 20050629
  2. IMMUNOSUPPRESSIVE AGENTS [Concomitant]
  3. GABAPENTIN [Concomitant]
     Indication: NEURALGIA

REACTIONS (9)
  - Transient ischaemic attack [Recovered/Resolved]
  - Chest pain [Unknown]
  - Disorientation [Unknown]
  - Fall [Unknown]
  - Pain [Recovered/Resolved]
  - Hypoaesthesia [Recovered/Resolved]
  - Paraesthesia [Recovered/Resolved]
  - Precancerous skin lesion [Not Recovered/Not Resolved]
  - Back pain [Not Recovered/Not Resolved]
